FAERS Safety Report 6562065-0 (Version None)
Quarter: 2010Q1

REPORT INFORMATION
  Report Type: 
  Country: None (occurrence: None)
  Receive Date: 20100130
  Receipt Date: 20091117
  Transmission Date: 20100710
  Serious: No
  Sender: FDA-Public Use
  Company Number: US-ABBOTT-09P-163-0600884-00

PATIENT
  Sex: Female
  Weight: 79.45 kg

DRUGS (2)
  1. HUMIRA [Suspect]
     Indication: RHEUMATOID ARTHRITIS
     Dosage: HOLD
     Dates: start: 20090909, end: 20091001
  2. HUMIRA [Suspect]

REACTIONS (4)
  - INFLUENZA [None]
  - OROPHARYNGEAL PAIN [None]
  - PRODUCTIVE COUGH [None]
  - UPPER RESPIRATORY TRACT INFECTION [None]
